FAERS Safety Report 10239496 (Version 2)
Quarter: 2014Q3

REPORT INFORMATION
  Report Type: Spontaneous
  Country: JP (occurrence: JP)
  Receive Date: 20140616
  Receipt Date: 20140722
  Transmission Date: 20150326
  Serious: Yes (Life-Threatening)
  Sender: FDA-Public Use
  Company Number: JP-SA-2014SA077806

PATIENT
  Age: 40 Year
  Sex: Female
  Weight: 83 kg

DRUGS (20)
  1. ELPLAT [Suspect]
     Active Substance: OXALIPLATIN
     Indication: COLORECTAL CANCER
     Route: 041
     Dates: start: 20121107, end: 20121107
  2. ELPLAT [Suspect]
     Active Substance: OXALIPLATIN
     Indication: COLORECTAL CANCER
     Route: 041
     Dates: start: 20130212, end: 20130212
  3. CALCIUM LEVOFOLINATE [Concomitant]
     Active Substance: LEVOLEUCOVORIN CALCIUM
     Dosage: IV INFUSION
     Dates: start: 20121107, end: 20130618
  4. HERBAL NOS [Concomitant]
     Active Substance: HERBALS
     Dosage: GRANULE
     Dates: start: 20121211
  5. ELPLAT [Suspect]
     Active Substance: OXALIPLATIN
     Indication: COLORECTAL CANCER
     Route: 041
     Dates: start: 20130507, end: 20130507
  6. ELPLAT [Suspect]
     Active Substance: OXALIPLATIN
     Indication: COLORECTAL CANCER
     Route: 041
     Dates: start: 20130618, end: 20130618
  7. ELPLAT [Suspect]
     Active Substance: OXALIPLATIN
     Indication: COLORECTAL CANCER
     Route: 041
     Dates: start: 20121211, end: 20121211
  8. ELPLAT [Suspect]
     Active Substance: OXALIPLATIN
     Indication: COLORECTAL CANCER
     Route: 041
     Dates: start: 20130326, end: 20130326
  9. ELPLAT [Suspect]
     Active Substance: OXALIPLATIN
     Indication: COLORECTAL CANCER
     Route: 041
     Dates: start: 20130122, end: 20130122
  10. ELPLAT [Suspect]
     Active Substance: OXALIPLATIN
     Indication: COLORECTAL CANCER
     Route: 041
     Dates: start: 20130416, end: 20130416
  11. MERCAZOLE [Concomitant]
     Active Substance: CARBIMAZOLE
     Dates: start: 20120629
  12. ELPLAT [Suspect]
     Active Substance: OXALIPLATIN
     Indication: COLORECTAL CANCER
     Route: 041
     Dates: start: 20130108, end: 20130108
  13. ELPLAT [Suspect]
     Active Substance: OXALIPLATIN
     Indication: COLORECTAL CANCER
     Route: 041
     Dates: start: 20130305, end: 20130305
  14. 5-FU [Concomitant]
     Active Substance: FLUOROURACIL
     Dosage: 680 MG/BODY (363.6 MG/M2) BOLUS THEN 4000 MG/BODY/D1-2 (2139 MG/M2/D1-2) AS CONTINUOUS INFUSION
     Dates: start: 20121107, end: 20130618
  15. AVASTIN [Concomitant]
     Active Substance: BEVACIZUMAB
     Dates: start: 20121107, end: 20130618
  16. DECADRON [Concomitant]
     Active Substance: DEXAMETHASONE
     Dates: start: 20121107, end: 20130618
  17. RED BLOOD CELLS, CONCENTRATED [Concomitant]
     Active Substance: HUMAN RED BLOOD CELL
     Dates: start: 20140604, end: 20140609
  18. ELPLAT [Suspect]
     Active Substance: OXALIPLATIN
     Indication: COLORECTAL CANCER
     Route: 041
     Dates: start: 20121120, end: 20121120
  19. ELPLAT [Suspect]
     Active Substance: OXALIPLATIN
     Indication: COLORECTAL CANCER
     Route: 041
     Dates: start: 20130528, end: 20130528
  20. PROEMEND [Concomitant]
     Active Substance: FOSAPREPITANT
     Dates: start: 20121107, end: 20130618

REACTIONS (3)
  - Oesophageal varices haemorrhage [Recovering/Resolving]
  - Portal hypertension [Not Recovered/Not Resolved]
  - Splenomegaly [Not Recovered/Not Resolved]

NARRATIVE: CASE EVENT DATE: 20130702
